FAERS Safety Report 17099372 (Version 1)
Quarter: 2019Q4

REPORT INFORMATION
  Report Type: Spontaneous
  Country: US (occurrence: US)
  Receive Date: 20191201
  Receipt Date: 20191201
  Transmission Date: 20200122
  Serious: Yes (Hospitalization)
  Sender: FDA-Public Use
  Company Number: None

PATIENT
  Age: 77 Year
  Sex: Male
  Weight: 63.6 kg

DRUGS (6)
  1. NINTEDANIB 100MG BID [Concomitant]
  2. VITAMIN C 500MG QD [Concomitant]
  3. BECLOMETHASONE 80 MCG BID [Concomitant]
  4. ATENOLOL 50MG BID [Concomitant]
  5. DABIGATRAN [Suspect]
     Active Substance: DABIGATRAN
     Indication: ATRIAL FIBRILLATION
     Route: 048
     Dates: start: 20141106
  6. MIDODRINE 5MG BID [Concomitant]

REACTIONS (1)
  - Gastrointestinal haemorrhage [None]

NARRATIVE: CASE EVENT DATE: 20150119
